FAERS Safety Report 11687311 (Version 3)
Quarter: 2018Q4

REPORT INFORMATION
  Report Type: Spontaneous
  Country: US (occurrence: US)
  Receive Date: 20151030
  Receipt Date: 20181025
  Transmission Date: 20190204
  Serious: Yes (Hospitalization, Other)
  Sender: FDA-Public Use
  Company Number: US-ASTRAZENECA-2015SF02840

PATIENT
  Age: 24987 Day
  Sex: Female
  Weight: 55.3 kg

DRUGS (4)
  1. XANAX [Concomitant]
     Active Substance: ALPRAZOLAM
     Indication: ANXIETY
     Dosage: 0.5MG AS REQUIRED
  2. PROZAC [Concomitant]
     Active Substance: FLUOXETINE HYDROCHLORIDE
     Indication: ANXIETY
  3. SYMBICORT [Suspect]
     Active Substance: BUDESONIDE\FORMOTEROL FUMARATE DIHYDRATE
     Indication: CHRONIC OBSTRUCTIVE PULMONARY DISEASE
     Dosage: 160MCG/4.5MCG, ONE PUFF TWICE DAILY
     Route: 055
     Dates: end: 20151021
  4. OMEPRAZOLE. [Suspect]
     Active Substance: OMEPRAZOLE
     Indication: GASTROOESOPHAGEAL REFLUX DISEASE
     Route: 048
     Dates: start: 2016

REACTIONS (16)
  - Cough [Unknown]
  - Off label use [Not Recovered/Not Resolved]
  - Eye haemorrhage [Unknown]
  - Irritable bowel syndrome [Recovered/Resolved]
  - Device issue [Unknown]
  - Blood sodium decreased [Recovered/Resolved]
  - Tremor [Unknown]
  - Nasopharyngitis [Unknown]
  - Ocular discomfort [Unknown]
  - Visual acuity reduced [Unknown]
  - Blood calcium decreased [Recovered/Resolved]
  - Malaise [Unknown]
  - Product dose omission [Not Recovered/Not Resolved]
  - Device malfunction [Unknown]
  - Intentional device misuse [Unknown]
  - Gastrooesophageal reflux disease [Unknown]

NARRATIVE: CASE EVENT DATE: 20151021
